FAERS Safety Report 10705773 (Version 5)
Quarter: 2015Q2

REPORT INFORMATION
  Report Type: Spontaneous
  Country: CA (occurrence: CA)
  Receive Date: 20150112
  Receipt Date: 20150420
  Transmission Date: 20150821
  Serious: Yes (Other)
  Sender: FDA-Public Use
  Company Number: CA-GSKJP-KK201408068GSK1550188002

PATIENT
  Age: 30 Year
  Sex: Female
  Weight: 46 kg

DRUGS (7)
  1. BENLYSTA [Suspect]
     Active Substance: BELIMUMAB
     Indication: SYSTEMIC LUPUS ERYTHEMATOSUS
     Dosage: 0,2,4 WEEKS THEN Q4 WEEKS
     Route: 042
     Dates: start: 20140213, end: 201502
  2. BENLYSTA [Suspect]
     Active Substance: BELIMUMAB
     Dosage: 450 MG, Z
     Route: 042
     Dates: start: 20141223
  3. BENLYSTA [Suspect]
     Active Substance: BELIMUMAB
     Dosage: 0,2,4 WEEKS THEN Q4 WEEKS
     Route: 042
     Dates: start: 20140213
  4. PLAQUENIL [Concomitant]
     Active Substance: HYDROXYCHLOROQUINE SULFATE
     Indication: SYSTEMIC LUPUS ERYTHEMATOSUS
     Dosage: 200 MG, QD
     Route: 048
  5. PARIET [Concomitant]
     Active Substance: RABEPRAZOLE SODIUM
     Indication: PRODUCT USED FOR UNKNOWN INDICATION
     Dosage: 20 MG, QD
     Route: 048
  6. ALENDRONATE [Concomitant]
     Active Substance: ALENDRONATE SODIUM
     Indication: PRODUCT USED FOR UNKNOWN INDICATION
     Dosage: 70 MG, UNK
     Route: 048
  7. PREDNISONE. [Concomitant]
     Active Substance: PREDNISONE
     Indication: SYSTEMIC LUPUS ERYTHEMATOSUS
     Dosage: 5 TO 15MG,QD
     Route: 048

REACTIONS (10)
  - Malaise [Unknown]
  - Migraine [Unknown]
  - Feeling abnormal [Unknown]
  - Hearing impaired [Unknown]
  - Pyrexia [Recovered/Resolved]
  - Therapeutic response decreased [Unknown]
  - Condition aggravated [Unknown]
  - Movement disorder [Unknown]
  - Fatigue [Recovered/Resolved]
  - Systemic lupus erythematosus [Recovered/Resolved]

NARRATIVE: CASE EVENT DATE: 20140314
